FAERS Safety Report 23272572 (Version 2)
Quarter: 2023Q4

REPORT INFORMATION
  Report Type: Spontaneous
  Country: FR (occurrence: FR)
  Receive Date: 20231207
  Receipt Date: 20231226
  Transmission Date: 20240110
  Serious: Yes (Hospitalization, Other)
  Sender: FDA-Public Use
  Company Number: None

PATIENT
  Age: 25 Year
  Sex: Female
  Weight: 93 kg

DRUGS (3)
  1. ACETAMINOPHEN [Suspect]
     Active Substance: ACETAMINOPHEN
     Indication: Caesarean section
     Route: 042
     Dates: start: 20231023, end: 20231023
  2. 1,3,5-TRIMETHOXYBENZENE [Suspect]
     Active Substance: 1,3,5-TRIMETHOXYBENZENE
     Indication: Caesarean section
     Dosage: ROA - INTRAVENOUS (NOT OTHERWISE SPECIFIED)
     Route: 042
     Dates: start: 20231023, end: 20231023
  3. KETOPROFEN [Suspect]
     Active Substance: KETOPROFEN
     Indication: Caesarean section
     Dosage: ROA - INTRAVENOUS (NOT OTHERWISE SPECIFIED)
     Route: 042
     Dates: start: 20231023, end: 20231023

REACTIONS (1)
  - Anaphylactic shock [Recovered/Resolved]

NARRATIVE: CASE EVENT DATE: 20231023
